FAERS Safety Report 4870093-6 (Version None)
Quarter: 2005Q4

REPORT INFORMATION
  Report Type: 
  Country: None (occurrence: None)
  Receive Date: 20051227
  Receipt Date: 20051216
  Transmission Date: 20060501
  Serious: Yes (Other)
  Sender: FDA-Public Use
  Company Number: 2005-12-0408

PATIENT
  Sex: Female

DRUGS (5)
  1. TEMODAR [Suspect]
     Dosage: 135-280 MG ORAL; 135MG QD ORAL; 280MG, QDX5D ORAL; 280MG QDX5D, ORAL
     Route: 048
     Dates: start: 20050804, end: 20050921
  2. TEMODAR [Suspect]
     Dosage: 135-280 MG ORAL; 135MG QD ORAL; 280MG, QDX5D ORAL; 280MG QDX5D, ORAL
     Route: 048
     Dates: start: 20051020, end: 20051024
  3. TEMODAR [Suspect]
     Dosage: 135-280 MG ORAL; 135MG QD ORAL; 280MG, QDX5D ORAL; 280MG QDX5D, ORAL
     Route: 048
     Dates: start: 20050804, end: 20051213
  4. TEMODAR [Suspect]
     Dosage: 135-280 MG ORAL; 135MG QD ORAL; 280MG, QDX5D ORAL; 280MG QDX5D, ORAL
     Route: 048
     Dates: start: 20051209, end: 20051213
  5. RADIATION THERAPY  NO DOSE FORM [Suspect]
     Dosage: X-RAY THERAPY
     Dates: start: 20050804

REACTIONS (3)
  - ALANINE AMINOTRANSFERASE INCREASED [None]
  - ASPARTATE AMINOTRANSFERASE INCREASED [None]
  - LIVER FUNCTION TEST ABNORMAL [None]
